FAERS Safety Report 9895257 (Version 1)
Quarter: 2014Q1

REPORT INFORMATION
  Report Type: Spontaneous
  Country: US (occurrence: US)
  Receive Date: 20140213
  Receipt Date: 20140213
  Transmission Date: 20141002
  Serious: No
  Sender: FDA-Public Use
  Company Number: US-BRISTOL-MYERS SQUIBB COMPANY-17271164

PATIENT
  Age: 61 Year
  Sex: Female
  Weight: 166 kg

DRUGS (37)
  1. ABATACEPT SUBQ INJECTION 125MG/ML [Suspect]
     Dosage: 1DF=125MG/ML(4PACK)
     Route: 058
  2. CYMBALTA [Concomitant]
     Dosage: CAPS
  3. XANAX [Concomitant]
     Dosage: TABS
  4. RESTASIS [Concomitant]
     Dosage: EMU
  5. VOLTAREN [Concomitant]
     Dosage: TABS EC
  6. ULTRAM [Concomitant]
     Dosage: TABS
  7. PREMARIN [Concomitant]
     Dosage: VAG CRE
  8. PATANOL [Concomitant]
  9. ALLEGRA [Concomitant]
     Dosage: TABS
  10. GABAPENTIN [Concomitant]
     Dosage: CAPS
  11. FENOFIBRATE [Concomitant]
     Dosage: TABS
  12. CITRUCEL [Concomitant]
     Dosage: POW
  13. GENTEAL [Concomitant]
     Dosage: GEL
  14. LIDOCAINE [Concomitant]
     Dosage: OIN
  15. BACLOFEN [Concomitant]
     Dosage: TABS
  16. FLONASE [Concomitant]
     Dosage: SPR
  17. ADVAIR DISKUS [Concomitant]
     Dosage: AER 100/50
  18. WELLBUTRIN XL [Concomitant]
     Dosage: TABS
  19. LOVAZA [Concomitant]
     Dosage: CAPS
  20. AMMONIUM LACTATE [Concomitant]
     Dosage: CRE
  21. TOPROL XL [Concomitant]
  22. VITAMIN B6 [Concomitant]
     Dosage: TABS
  23. ZAFIRLUKAST [Concomitant]
     Dosage: TABS
  24. SPIRIVA [Concomitant]
     Dosage: CAP HANDIHLR
  25. LIDODERM [Concomitant]
     Dosage: DIS
  26. ARTIFICIAL TEARS [Concomitant]
     Dosage: TEARS
  27. AMITIZA [Concomitant]
     Dosage: CAPS
  28. PROAIR HFA [Concomitant]
     Dosage: AER
  29. PRILOSEC [Concomitant]
     Dosage: TABS
  30. FORMALDEHYDE [Concomitant]
     Dosage: SOL
  31. POLYETHYLENE GLYCOL [Concomitant]
  32. POLYETHYLENE GLYCOL [Concomitant]
     Dosage: POW 3350-GRX
  33. WELCHOL [Concomitant]
     Dosage: PAK
  34. CALCIUM CITRATE [Concomitant]
     Dosage: TAB
  35. VITAMIN D [Concomitant]
  36. FOLIC ACID [Concomitant]
     Dosage: TAB
  37. VITAMIN B12 [Concomitant]
     Dosage: TAB

REACTIONS (3)
  - Cystitis [Unknown]
  - Sinusitis [Unknown]
  - Bronchitis [Unknown]
